FAERS Safety Report 18625561 (Version 3)
Quarter: 2021Q3

REPORT INFORMATION
  Report Type: Other
  Country: AT (occurrence: AT)
  Receive Date: 20201217
  Receipt Date: 20210818
  Transmission Date: 20211014
  Serious: No
  Sender: FDA-Public Use
  Company Number: AT-ROCHE-2733102

PATIENT
  Age: 55 Year
  Sex: Female
  Weight: 70.5 kg

DRUGS (32)
  1. OCRELIZUMAB. [Suspect]
     Active Substance: OCRELIZUMAB
     Indication: PRIMARY PROGRESSIVE MULTIPLE SCLEROSIS
     Dosage: 300 MG/250 ML?EVERY 6 MONTHS
     Route: 042
     Dates: start: 20190321, end: 20190321
  2. PANTOPRAZOL [Concomitant]
     Active Substance: PANTOPRAZOLE SODIUM
     Indication: PREMEDICATION
     Route: 048
     Dates: start: 20190321, end: 20190321
  3. OCRELIZUMAB. [Suspect]
     Active Substance: OCRELIZUMAB
     Dosage: 600 MG/500 ML
     Route: 042
     Dates: start: 20191008, end: 20191008
  4. OCRELIZUMAB. [Suspect]
     Active Substance: OCRELIZUMAB
     Dosage: 600 MG/500 ML
     Route: 042
     Dates: start: 20200421, end: 20200421
  5. GABAPENTIN. [Concomitant]
     Active Substance: GABAPENTIN
     Indication: INTERVERTEBRAL DISC PROTRUSION
     Route: 048
  6. LIORESAL [Concomitant]
     Active Substance: BACLOFEN
     Route: 048
  7. OLEOVIT D3 [Concomitant]
     Active Substance: CHOLECALCIFEROL
     Indication: PROPHYLAXIS
     Route: 048
  8. CALMABEN [Concomitant]
     Indication: PREMEDICATION
     Route: 048
     Dates: start: 20190321, end: 20190321
  9. CALMABEN [Concomitant]
     Dates: start: 20190404, end: 20190404
  10. SOLUDACORTIN [Concomitant]
     Indication: PREMEDICATION
     Route: 042
     Dates: start: 20191008, end: 20191008
  11. FAMPYRA [Concomitant]
     Active Substance: DALFAMPRIDINE
     Route: 048
     Dates: start: 201910
  12. MOLAXOLE [Concomitant]
     Active Substance: POLYETHYLENE GLYCOL 3350\POTASSIUM CHLORIDE\SODIUM BICARBONATE\SODIUM CHLORIDE
     Indication: CONSTIPATION
     Dosage: SACHET
     Route: 048
  13. PARACETAMOL [Concomitant]
     Active Substance: ACETAMINOPHEN
     Indication: PREMEDICATION
     Route: 042
     Dates: start: 20190321, end: 20190321
  14. PANTIP [Concomitant]
     Active Substance: PANTOPRAZOLE SODIUM
     Indication: PREMEDICATION
     Route: 048
     Dates: start: 20190404, end: 20190404
  15. DIBONDRIN [Concomitant]
     Active Substance: DIPHENHYDRAMINE HYDROCHLORIDE
     Indication: PREMEDICATION
     Route: 042
     Dates: start: 20191008, end: 20191008
  16. DIBONDRIN [Concomitant]
     Active Substance: DIPHENHYDRAMINE HYDROCHLORIDE
     Route: 048
  17. DRONABINOL. [Concomitant]
     Active Substance: DRONABINOL
     Route: 048
     Dates: start: 20200520, end: 2020
  18. PERFALGAN [Concomitant]
     Active Substance: ACETAMINOPHEN
     Route: 042
     Dates: start: 20191008, end: 20191008
  19. OCRELIZUMAB. [Suspect]
     Active Substance: OCRELIZUMAB
     Dosage: 600 MG/500 ML
     Route: 042
     Dates: start: 20201020, end: 20201020
  20. CITALOPRAM [Concomitant]
     Active Substance: CITALOPRAM HYDROBROMIDE
     Indication: DEPRESSION
     Route: 048
  21. TEGRETOL XR [Concomitant]
     Active Substance: CARBAMAZEPINE
     Route: 048
     Dates: start: 201910, end: 20201007
  22. PARACETAMOL [Concomitant]
     Active Substance: ACETAMINOPHEN
     Route: 042
     Dates: start: 20201020, end: 20201020
  23. URBASON [Concomitant]
     Active Substance: METHYLPREDNISOLONE
     Indication: PREMEDICATION
     Route: 042
     Dates: start: 20190321, end: 20190321
  24. DIBONDRIN [Concomitant]
     Active Substance: DIPHENHYDRAMINE HYDROCHLORIDE
     Route: 048
     Dates: start: 20201020, end: 20201020
  25. OCRELIZUMAB. [Suspect]
     Active Substance: OCRELIZUMAB
     Dosage: 300 MG/250 ML
     Route: 042
     Dates: start: 20190404, end: 20190404
  26. URBASON [Concomitant]
     Active Substance: METHYLPREDNISOLONE
     Dates: start: 20190404, end: 20190404
  27. PERFALGAN [Concomitant]
     Active Substance: ACETAMINOPHEN
     Route: 042
     Dates: start: 20200421, end: 20200421
  28. TRITTICO [Concomitant]
     Active Substance: TRAZODONE HYDROCHLORIDE
     Indication: DEPRESSION
     Route: 048
  29. TEGRETOL XR [Concomitant]
     Active Substance: CARBAMAZEPINE
     Route: 048
     Dates: start: 202010, end: 202012
  30. DRONABINOL. [Concomitant]
     Active Substance: DRONABINOL
     Route: 048
     Dates: start: 2020
  31. PERFALGAN [Concomitant]
     Active Substance: ACETAMINOPHEN
     Indication: PREMEDICATION
     Route: 042
     Dates: start: 20190404, end: 20190404
  32. SOLUDACORTIN [Concomitant]
     Route: 042
     Dates: start: 20200421, end: 20200421

REACTIONS (1)
  - COVID-19 [Recovered/Resolved]

NARRATIVE: CASE EVENT DATE: 20201104
